FAERS Safety Report 13536580 (Version 1)
Quarter: 2017Q2

REPORT INFORMATION
  Report Type: Spontaneous
  Country: CN (occurrence: CN)
  Receive Date: 20170511
  Receipt Date: 20170511
  Transmission Date: 20170830
  Serious: Yes (Other)
  Sender: FDA-Public Use
  Company Number: CN-ARBOR PHARMACEUTICALS, LLC-CN-2017ARB000481

PATIENT
  Age: 8 Year
  Sex: Female

DRUGS (2)
  1. METHYLPREDNISOLONE. [Concomitant]
     Active Substance: METHYLPREDNISOLONE
     Indication: MYCOPLASMA INFECTION
     Dosage: 5 MG/KG, QD
  2. ERYTHROMYCIN. [Suspect]
     Active Substance: ERYTHROMYCIN
     Indication: MYCOPLASMA INFECTION
     Dosage: 30 MG/KG, QD

REACTIONS (1)
  - Intussusception [Recovered/Resolved]
